FAERS Safety Report 7558317-8 (Version None)
Quarter: 2011Q2

REPORT INFORMATION
  Report Type: 
  Country: None (occurrence: None)
  Receive Date: 20110620
  Receipt Date: 20110614
  Transmission Date: 20111010
  Serious: Yes (Death)
  Sender: FDA-Public Use
  Company Number: MX-ELI_LILLY_AND_COMPANY-MX201105004350

PATIENT
  Sex: Male

DRUGS (3)
  1. HEPARIN [Concomitant]
     Dosage: UNK
     Route: 065
     Dates: start: 20110513
  2. EFFIENT [Suspect]
     Dosage: 60 MG, UNKNOWN
     Route: 065
  3. ASPIRIN [Concomitant]
     Dosage: UNK
     Route: 065
     Dates: start: 20110513

REACTIONS (1)
  - CARDIOGENIC SHOCK [None]
